FAERS Safety Report 15415564 (Version 1)
Quarter: 2018Q3

REPORT INFORMATION
  Report Type: Spontaneous
  Country: US (occurrence: US)
  Receive Date: 20180922
  Receipt Date: 20180922
  Transmission Date: 20181010
  Serious: No
  Sender: FDA-Public Use
  Company Number: US-JNJFOC-20180815932

PATIENT
  Sex: Female
  Weight: 56.7 kg

DRUGS (12)
  1. ZETIA [Concomitant]
     Active Substance: EZETIMIBE
     Route: 065
  2. CLONIDINE. [Concomitant]
     Active Substance: CLONIDINE
     Dosage: AS NEEDED
     Route: 065
  3. LESCOL XL [Concomitant]
     Active Substance: FLUVASTATIN SODIUM
     Dosage: AS NEEDED
     Route: 065
  4. LOSARTAN. [Concomitant]
     Active Substance: LOSARTAN
     Route: 065
  5. ESTRADIOL. [Concomitant]
     Active Substance: ESTRADIOL
     Indication: HORMONE LEVEL ABNORMAL
     Route: 065
  6. HYDROCHLOROTHIAZIDE. [Concomitant]
     Active Substance: HYDROCHLOROTHIAZIDE
     Dosage: AS NEEDED
     Route: 065
  7. LEVAQUIN [Suspect]
     Active Substance: LEVOFLOXACIN
     Indication: SINUSITIS
     Route: 048
     Dates: start: 1999
  8. NORVASC [Concomitant]
     Active Substance: AMLODIPINE BESYLATE
     Indication: CARDIAC DISORDER
     Route: 065
  9. PLAVIX [Concomitant]
     Active Substance: CLOPIDOGREL BISULFATE
     Dosage: AS NEEDED
     Route: 065
  10. NITROSTAT [Concomitant]
     Active Substance: NITROGLYCERIN
     Dosage: AS NEEDED
     Route: 065
  11. COREG [Concomitant]
     Active Substance: CARVEDILOL
     Indication: CARDIAC DISORDER
     Route: 065
  12. NORVASC [Concomitant]
     Active Substance: AMLODIPINE BESYLATE
     Indication: BLOOD PRESSURE ABNORMAL
     Route: 065

REACTIONS (1)
  - Product distribution issue [Unknown]
